FAERS Safety Report 5380999-X (Version None)
Quarter: 2007Q3

REPORT INFORMATION
  Report Type: 
  Country: None (occurrence: None)
  Receive Date: 20070706
  Receipt Date: 20070628
  Transmission Date: 20080115
  Serious: Yes (Hospitalization)
  Sender: FDA-Public Use
  Company Number: US-ABBOTT-07P-163-0373248-00

PATIENT
  Sex: Male

DRUGS (6)
  1. DEPAKOTE [Suspect]
     Indication: DRUG USE FOR UNKNOWN INDICATION
  2. LORAZEPAM [Suspect]
     Indication: DRUG USE FOR UNKNOWN INDICATION
  3. ARIPIPRAZOLE [Suspect]
     Indication: BIPOLAR I DISORDER
     Route: 048
     Dates: start: 20070314, end: 20070329
  4. PLACEBO [Suspect]
     Indication: BIPOLAR I DISORDER
     Route: 048
     Dates: start: 20070314, end: 20070329
  5. LAMOTRIGINE [Suspect]
     Indication: BIPOLAR I DISORDER
     Route: 048
     Dates: start: 20061114, end: 20070319
  6. PROPRANOLOL [Concomitant]
     Indication: DRUG USE FOR UNKNOWN INDICATION
     Dates: start: 20061210, end: 20070314

REACTIONS (5)
  - BIPOLAR I DISORDER [None]
  - DEPRESSION [None]
  - INTENTIONAL OVERDOSE [None]
  - IRRITABILITY [None]
  - MEDICATION ERROR [None]
